FAERS Safety Report 6793488-2 (Version None)
Quarter: 2010Q2

REPORT INFORMATION
  Report Type: 
  Country: None (occurrence: None)
  Receive Date: 20100624
  Receipt Date: 20100517
  Transmission Date: 20101027
  Serious: Yes (Death, Other)
  Sender: FDA-Public Use
  Company Number: US-MYLANLABS-2010S1006312

PATIENT
  Age: 77 Year
  Sex: Female

DRUGS (9)
  1. CLOZAPINE [Suspect]
     Indication: HALLUCINATION
     Route: 048
     Dates: end: 20091201
  2. CLOZAPINE [Suspect]
     Indication: DELUSION
     Route: 048
     Dates: end: 20091201
  3. AMIODARONE HCL [Concomitant]
  4. SINEMET [Concomitant]
     Dosage: 50/200 TID AND 10/100 TID
  5. OXYBUTYNIN CHLORIDE [Concomitant]
  6. NEXIUM [Concomitant]
  7. NITROFURANTOIN [Concomitant]
  8. COUMADIN [Concomitant]
  9. OPIUM TINCTURE [Concomitant]

REACTIONS (1)
  - DEATH [None]
